FAERS Safety Report 16983626 (Version 1)
Quarter: 2019Q4

REPORT INFORMATION
  Report Type: Spontaneous
  Country: US (occurrence: US)
  Receive Date: 20191101
  Receipt Date: 20191101
  Transmission Date: 20200122
  Serious: No
  Sender: FDA-Public Use
  Company Number: US-PFIZER INC-2019464657

PATIENT
  Age: 58 Year
  Sex: Male
  Weight: 97.51 kg

DRUGS (6)
  1. COSENTYX [Concomitant]
     Active Substance: SECUKINUMAB
     Indication: PAIN
     Dosage: 150 MG, UNK (150 MILIGRAMS ONE PER MONTH OR EVERY 28 DAYS)
     Route: 048
  2. FLECTOR [Suspect]
     Active Substance: DICLOFENAC EPOLAMINE
     Indication: BACK PAIN
     Dosage: UNK
     Route: 062
  3. FLECTOR [Suspect]
     Active Substance: DICLOFENAC EPOLAMINE
     Indication: PAIN
     Dosage: UNK UNK, DAILY
     Route: 061
  4. TIZANIDINE. [Suspect]
     Active Substance: TIZANIDINE
     Indication: BACK PAIN
     Dosage: 2 MG, AS NEEDED (2 MG, 1 TABLET 4 TIMES A DAY AS NEEDED)
     Route: 048
  5. NAPROXEN. [Suspect]
     Active Substance: NAPROXEN
     Indication: PAIN
     Dosage: 220 MG, UNK (220 MG, 2 ALONG WITH HIS OTHER MEDICATIONS)
     Route: 048
  6. MELOXICAM. [Concomitant]
     Active Substance: MELOXICAM
     Indication: PAIN
     Dosage: 15 MG, 1X/DAY
     Route: 048

REACTIONS (7)
  - Headache [Not Recovered/Not Resolved]
  - Eye pain [Unknown]
  - Off label use [Unknown]
  - Tenderness [Unknown]
  - Fatigue [Not Recovered/Not Resolved]
  - Discomfort [Unknown]
  - Drug ineffective for unapproved indication [Unknown]
